FAERS Safety Report 24218378 (Version 4)
Quarter: 2024Q4

REPORT INFORMATION
  Report Type: Spontaneous
  Country: US (occurrence: US)
  Receive Date: 20240816
  Receipt Date: 20241003
  Transmission Date: 20250114
  Serious: No
  Sender: JOHNSON AND JOHNSON
  Company Number: US-JNJFOC-20240827513

PATIENT
  Age: 66 Year
  Sex: Female

DRUGS (1)
  1. TREMFYA [Suspect]
     Active Substance: GUSELKUMAB
     Indication: Psoriasis
     Route: 065
     Dates: start: 202402, end: 20240731

REACTIONS (9)
  - Psoriasis [Unknown]
  - Product dose omission issue [Unknown]
  - Needle issue [Unknown]
  - Needle issue [Unknown]
  - Accidental exposure to product [Unknown]
  - Discomfort [Unknown]
  - Depressed mood [Unknown]
  - Anxiety [Unknown]
  - Anxiety [Unknown]

NARRATIVE: CASE EVENT DATE: 20240731
